FAERS Safety Report 9104141 (Version 1)
Quarter: 2013Q1

REPORT INFORMATION
  Report Type: Spontaneous
  Country: US (occurrence: US)
  Receive Date: 20130219
  Receipt Date: 20130219
  Transmission Date: 20140127
  Serious: Yes (Other)
  Sender: FDA-Public Use
  Company Number: US-SANOFI-AVENTIS-2012SA016831

PATIENT
  Age: 82 Year
  Sex: Male

DRUGS (4)
  1. GLIBENCLAMIDE [Suspect]
     Route: 065
  2. METFORMIN [Suspect]
     Route: 065
  3. PIOGLITAZONE [Suspect]
     Route: 065
  4. BLINDED THERAPY [Suspect]
     Route: 065

REACTIONS (1)
  - Hypoglycaemic unconsciousness [Recovered/Resolved]
